FAERS Safety Report 23059026 (Version 1)
Quarter: 2023Q4

REPORT INFORMATION
  Report Type: Spontaneous
  Country: US (occurrence: US)
  Receive Date: 20231012
  Receipt Date: 20231012
  Transmission Date: 20240109
  Serious: No
  Sender: FDA-Public Use
  Company Number: US-ABBVIE-5443444

PATIENT
  Sex: Female

DRUGS (1)
  1. PREDNISOLONE ACETATE [Suspect]
     Active Substance: PREDNISOLONE ACETATE
     Indication: Eye disorder
     Dosage: OPHTHALMIC SUSPENSION?STRENGTH: 1%?ONE DROP ON EACH OF EYE EVERY NIGHT?STARTED ABOUT YEAR AGO
     Route: 047

REACTIONS (2)
  - Eye disorder [Unknown]
  - Product container issue [Unknown]
